FAERS Safety Report 10963413 (Version 1)
Quarter: 2015Q1

REPORT INFORMATION
  Report Type: Spontaneous
  Country: US (occurrence: None)
  Receive Date: 20150325
  Receipt Date: 20150325
  Transmission Date: 20150721
  Serious: Yes (Life-Threatening)
  Sender: FDA-Public Use
  Company Number: None

PATIENT
  Age: 25 Year
  Sex: Female

DRUGS (1)
  1. PPD [Suspect]
     Active Substance: TUBERCULIN PURIFIED PROTEIN DERIVATIVE
     Dosage: INTRADERMAL L FOREARM
     Route: 023
     Dates: start: 20150309, end: 20150309

REACTIONS (5)
  - Wheezing [None]
  - Dyspnoea [None]
  - Anaphylactic reaction [None]
  - Urticaria [None]
  - Throat tightness [None]

NARRATIVE: CASE EVENT DATE: 20150309
